FAERS Safety Report 8104070-9 (Version None)
Quarter: 2012Q1

REPORT INFORMATION
  Report Type: 
  Country: None (occurrence: None)
  Receive Date: 20120201
  Receipt Date: 20120127
  Transmission Date: 20120608
  Serious: No
  Sender: FDA-Public Use
  Company Number: US-PFIZER INC-2012023476

PATIENT
  Sex: Male
  Weight: 76.19 kg

DRUGS (1)
  1. IBUPROFEN (ADVIL) [Suspect]
     Indication: BACK PAIN
     Dosage: 600 MG, 1X/DAY
     Route: 048
     Dates: start: 20120127

REACTIONS (4)
  - PRURITUS [None]
  - ERYTHEMA [None]
  - INCORRECT DOSE ADMINISTERED [None]
  - URTICARIA [None]
